FAERS Safety Report 6406095-8 (Version None)
Quarter: 2009Q4

REPORT INFORMATION
  Report Type: 
  Country: None (occurrence: None)
  Receive Date: 20091019
  Receipt Date: 20091005
  Transmission Date: 20100525
  Serious: Yes (Hospitalization)
  Sender: FDA-Public Use
  Company Number: HK-ELI_LILLY_AND_COMPANY-HK200910002044

PATIENT
  Age: 17 Year
  Sex: Male

DRUGS (2)
  1. ZYPREXA [Suspect]
     Indication: SCHIZOPHRENIA
     Dosage: 10 MG, DAILY (1/D)
     Route: 065
     Dates: start: 20080919, end: 20081001
  2. RISPERIDONE [Concomitant]
     Dosage: 4 MG, DAILY (1/D)
     Route: 065
     Dates: start: 20080807, end: 20080901

REACTIONS (3)
  - DIARRHOEA [None]
  - HEPATOTOXICITY [None]
  - SPLENOMEGALY [None]
